FAERS Safety Report 21374033 (Version 1)
Quarter: 2022Q3

REPORT INFORMATION
  Report Type: Spontaneous
  Country: US (occurrence: US)
  Receive Date: 20220926
  Receipt Date: 20220926
  Transmission Date: 20221027
  Serious: No
  Sender: FDA-Public Use
  Company Number: US-STRIDES ARCOLAB LIMITED-2022SP009071

PATIENT
  Age: 48 Year
  Sex: Male

DRUGS (2)
  1. PREDNISOLONE [Suspect]
     Active Substance: PREDNISOLONE
     Indication: Autoimmune hepatitis
     Dosage: UNK
     Route: 065
  2. HYDROCHLOROTHIAZIDE\LISINOPRIL [Concomitant]
     Active Substance: HYDROCHLOROTHIAZIDE\LISINOPRIL
     Indication: Hypertension
     Dosage: UNK
     Route: 065

REACTIONS (5)
  - Hyperglycaemia [Unknown]
  - Staphylococcal infection [Unknown]
  - Enterobacter infection [Unknown]
  - Pseudomonas aeruginosa meningitis [Unknown]
  - Klebsiella bacteraemia [Unknown]
